FAERS Safety Report 4511078-9 (Version None)
Quarter: 2004Q4

REPORT INFORMATION
  Report Type: 
  Country: None (occurrence: None)
  Receive Date: 20041015
  Receipt Date: 20040412
  Transmission Date: 20050328
  Serious: Yes (Other)
  Sender: FDA-Public Use
  Company Number: 2004009820

PATIENT
  Age: 61 Year
  Sex: Male
  Weight: 86.1834 kg

DRUGS (2)
  1. NEURONTIN [Suspect]
     Indication: ARTHRITIS
     Dosage: 300 MG (DAILY), ORAL
     Route: 048
     Dates: start: 20040201, end: 20040201
  2. CELEBREX [Suspect]
     Indication: ARTHRITIS
     Dosage: 200 MG (DAILY), ORAL
     Route: 048

REACTIONS (6)
  - ABNORMAL DREAMS [None]
  - ARTHRITIS [None]
  - BALANCE DISORDER [None]
  - DISORIENTATION [None]
  - HEADACHE [None]
  - LOSS OF CONSCIOUSNESS [None]
